FAERS Safety Report 17861068 (Version 1)
Quarter: 2020Q2

REPORT INFORMATION
  Report Type: Spontaneous
  Country: NL (occurrence: RO)
  Receive Date: 20200604
  Receipt Date: 20200604
  Transmission Date: 20200714
  Serious: Yes (Other)
  Sender: FDA-Public Use
  Company Number: RO-FRESENIUS KABI-FK202005336

PATIENT
  Age: 75 Year
  Sex: Male

DRUGS (9)
  1. CAPECITABINE. [Suspect]
     Active Substance: CAPECITABINE
     Indication: RECTAL NEOPLASM
     Dosage: ADJUVANT CHEMOTHERAPY - 6 CYCLES
     Route: 048
  2. CAPECITABINE. [Suspect]
     Active Substance: CAPECITABINE
     Indication: LYMPHADENOPATHY
     Dosage: DAY 1-14 (MAINTENANCE CHEMOTHERAPY)
     Route: 065
     Dates: start: 201802, end: 201806
  3. CAPECITABINE. [Suspect]
     Active Substance: CAPECITABINE
     Dosage: DAY 1-14, 1 CYCLE
     Route: 065
     Dates: start: 2020
  4. BEVACIZUMAB. [Suspect]
     Active Substance: BEVACIZUMAB
     Dosage: FIRST-LINE TREATMENT
     Route: 065
     Dates: start: 201802, end: 201806
  5. BEVACIZUMAB. [Suspect]
     Active Substance: BEVACIZUMAB
     Dosage: MAINTENANCE CHEMOTHERAPY
     Route: 065
     Dates: start: 201806, end: 2019
  6. CAPECITABINE. [Suspect]
     Active Substance: CAPECITABINE
     Dosage: DAY 1-14 (MAINTENANCE CHEMOTHERAPY)
     Route: 065
     Dates: start: 201806
  7. BEVACIZUMAB. [Suspect]
     Active Substance: BEVACIZUMAB
     Indication: LYMPHADENOPATHY
     Route: 065
     Dates: end: 2020
  8. OXALIPLATIN (MANUFACTURER UNKNOWN) [Suspect]
     Active Substance: OXALIPLATIN
     Indication: RECTAL NEOPLASM
     Dosage: ADJUVANT CHEMOTHERAPY - 6 CYCLES
     Route: 065
  9. OXALIPLATIN (MANUFACTURER UNKNOWN) [Suspect]
     Active Substance: OXALIPLATIN
     Indication: LYMPHADENOPATHY
     Dosage: 6 CYCLES XELOX
     Route: 065
     Dates: start: 201802, end: 201806

REACTIONS (6)
  - Prostate cancer [Unknown]
  - Proteinuria [Unknown]
  - Cough [Unknown]
  - Escherichia urinary tract infection [Unknown]
  - Skin toxicity [Unknown]
  - Hypertension [Unknown]

NARRATIVE: CASE EVENT DATE: 202003
